FAERS Safety Report 9334290 (Version 1)
Quarter: 2013Q2

REPORT INFORMATION
  Report Type: Spontaneous
  Country: GB (occurrence: None)
  Receive Date: 20130604
  Receipt Date: 20130604
  Transmission Date: 20140414
  Serious: Yes (Life-Threatening)
  Sender: FDA-Public Use
  Company Number: FK201301745

PATIENT
  Age: 66 Year
  Sex: Female

DRUGS (3)
  1. PROPOFOL [Suspect]
     Indication: SEDATION
     Route: 042
     Dates: start: 20130113
  2. REMIFENTANIL [Suspect]
     Indication: SEDATION
     Dosage: 1,3 UG/KG/HR
     Dates: start: 20130113
  3. DEXDOR [Suspect]
     Indication: WEAN FROM VENTILATOR
     Dosage: 0.9MCG/KG/MIN INTRAVENOUS (NOT OTHERWISE SPECIFIED)
     Route: 042
     Dates: start: 20130115, end: 20130116

REACTIONS (3)
  - Confusional state [None]
  - Agitation [None]
  - Encephalitis [None]
